FAERS Safety Report 18972629 (Version 1)
Quarter: 2021Q1

REPORT INFORMATION
  Report Type: Spontaneous
  Country: US (occurrence: US)
  Receive Date: 20210304
  Receipt Date: 20210304
  Transmission Date: 20210420
  Serious: Yes (Other)
  Sender: FDA-Public Use
  Company Number: None

PATIENT
  Age: 34 Year
  Sex: Female
  Weight: 40.5 kg

DRUGS (1)
  1. CIPROFLOXACIN. [Suspect]
     Active Substance: CIPROFLOXACIN
     Indication: URINARY TRACT INFECTION
     Dates: start: 20210228, end: 20210304

REACTIONS (16)
  - Depression [None]
  - Urticaria [None]
  - Renal pain [None]
  - Oedematous kidney [None]
  - Condition aggravated [None]
  - Quality of life decreased [None]
  - Gait inability [None]
  - Dehydration [None]
  - Physical assault [None]
  - Hypophagia [None]
  - Pyrexia [None]
  - Myalgia [None]
  - Bedridden [None]
  - Decreased activity [None]
  - Near death experience [None]
  - Toxicity to various agents [None]

NARRATIVE: CASE EVENT DATE: 20210301
